FAERS Safety Report 8592040-6 (Version None)
Quarter: 2012Q3

REPORT INFORMATION
  Report Type: 
  Country: None (occurrence: None)
  Receive Date: 20120814
  Receipt Date: 20120808
  Transmission Date: 20120928
  Serious: Yes (Other)
  Sender: FDA-Public Use
  Company Number: AU-JNJFOC-20120805109

PATIENT
  Age: 40 Year
  Sex: Female

DRUGS (3)
  1. ROGAINE EXTRA STRENGTH (FOR MEN) [Suspect]
     Route: 061
  2. ROGAINE EXTRA STRENGTH (FOR MEN) [Suspect]
     Indication: ALOPECIA
     Dosage: DAY AND NIGHT
     Route: 061
     Dates: start: 20120704, end: 20120731
  3. LEVOTHYROXINE SODIUM [Concomitant]
     Indication: AUTOIMMUNE THYROIDITIS
     Route: 065

REACTIONS (5)
  - WEIGHT INCREASED [None]
  - RASH PRURITIC [None]
  - WRONG DRUG ADMINISTERED [None]
  - THYROXINE ABNORMAL [None]
  - OFF LABEL USE [None]
